FAERS Safety Report 8784524 (Version 1)
Quarter: 2012Q4

REPORT INFORMATION
  Report Type: Spontaneous
  Country: ES (occurrence: None)
  Receive Date: 20120830
  Receipt Date: 20120830
  Transmission Date: 20130627
  Serious: Yes (Other)
  Sender: FDA-Public Use
  Company Number: AUR-APL-2012-03675

PATIENT
  Age: 86 Year
  Sex: Male

DRUGS (9)
  1. LEVOFLOXACIN (LEVOFLOXACIN) [Suspect]
     Indication: PNEUMONIA
     Dosage: (500 MG, 1 IN 1 D)
     Route: 048
  2. LEVOFLOXACIN (LEVOFLOXACIN) [Suspect]
     Dosage: (500 MG, 1 IN 1 D)
     Route: 042
  3. ALLOPURINOL (ALLOPURINOL [Concomitant]
  4. ALPRAZOLAM (ALPRAZOLAM) [Concomitant]
  5. OMEPRAZOLE (OMEPRAZOLE) [Concomitant]
  6. TORSEMIDE (TORASEMIDE) [Concomitant]
  7. GABAPENTIN (GABAPENTIN) [Concomitant]
  8. PREGABALIN (PREGABALIN) [Concomitant]
  9. PREDNISONE (PREDNISONE) [Concomitant]

REACTIONS (8)
  - Thrombocytopenia [None]
  - Pneumonia [None]
  - Petechiae [None]
  - Abdominal pain [None]
  - Ecchymosis [None]
  - Renal failure [None]
  - Anaemia macrocytic [None]
  - Upper gastrointestinal haemorrhage [None]
